FAERS Safety Report 5446805-X (Version None)
Quarter: 2007Q3

REPORT INFORMATION
  Report Type: 
  Country: None (occurrence: None)
  Receive Date: 20070907
  Receipt Date: 20070827
  Transmission Date: 20080115
  Serious: Yes (Other)
  Sender: FDA-Public Use
  Company Number: US-PFIZER INC-2007072310

PATIENT
  Sex: Female

DRUGS (6)
  1. CHANTIX [Suspect]
     Indication: SMOKING CESSATION THERAPY
  2. SYNTHROID [Interacting]
     Indication: THYROID DISORDER
  3. ATENOLOL [Concomitant]
  4. PRAVACHOL [Concomitant]
  5. METAGLIP [Concomitant]
  6. INSULIN [Concomitant]

REACTIONS (5)
  - DRUG INTERACTION [None]
  - INSOMNIA [None]
  - RESTLESS LEGS SYNDROME [None]
  - THYROID DISORDER [None]
  - WEIGHT INCREASED [None]
